FAERS Safety Report 9379964 (Version 3)
Quarter: 2013Q3

REPORT INFORMATION
  Report Type: Report from Study
  Country: DE (occurrence: DE)
  Receive Date: 20130702
  Receipt Date: 20130923
  Transmission Date: 20140515
  Serious: Yes (Hospitalization, Other)
  Sender: FDA-Public Use
  Company Number: PHHY2013DE067559

PATIENT
  Age: 66 Year
  Sex: Male
  Weight: 99 kg

DRUGS (13)
  1. AMN107 [Suspect]
     Indication: CHRONIC MYELOID LEUKAEMIA
     Dosage: 600 MG, DAILY
     Route: 048
     Dates: start: 20130111, end: 20130515
  2. PREDNISOLONE [Concomitant]
     Indication: FIBROMYALGIA
     Dosage: 5 MG/DAY
  3. PREDNISOLONE [Concomitant]
     Indication: POLYMYALGIA RHEUMATICA
  4. RAMIPRIL [Concomitant]
     Indication: LEFT VENTRICULAR FAILURE
     Dosage: 5 MG, QD IN MORNING
  5. RAMIPRIL [Concomitant]
     Indication: HYPERTENSION
  6. ALLOPURINOL [Concomitant]
     Indication: PROPHYLAXIS
     Dosage: 300 MG, QD
     Route: 048
  7. BELOC-ZOC MITE [Concomitant]
     Indication: HYPERTENSION
     Dosage: 95 MG, QD IN MORNING
  8. HCT [Concomitant]
     Dosage: 12.5 MG, QD IN MORNING
  9. ALDACTONE [Concomitant]
     Indication: LEFT VENTRICULAR FAILURE
     Dosage: 50 MG, QD IN EVENING
  10. LASIX [Concomitant]
     Indication: LEFT VENTRICULAR FAILURE
     Dosage: 40 MG, QD IN MORNING
  11. LASIX [Concomitant]
     Indication: HYPERTENSION
  12. ASA [Concomitant]
     Indication: PROPHYLAXIS
     Dosage: 100 MG, QD IN AFTERNOON
  13. DICLOFENAC [Concomitant]
     Indication: POLYMYALGIA RHEUMATICA
     Dosage: 75 MG/DAY

REACTIONS (5)
  - Renal impairment [Recovering/Resolving]
  - Transaminases increased [Recovered/Resolved]
  - Arthralgia [Recovering/Resolving]
  - Haemorrhoidal haemorrhage [Recovered/Resolved]
  - Haematochezia [Recovered/Resolved]
